FAERS Safety Report 8835801 (Version 1)
Quarter: 2012Q4

REPORT INFORMATION
  Report Type: 
  Country: CA (occurrence: CA)
  Receive Date: 20121011
  Receipt Date: 20121011
  Transmission Date: 20130627
  Serious: Yes (Hospitalization)
  Sender: FDA-Public Use
  Company Number: CA-GLAXOSMITHKLINE-A0997024A

PATIENT
  Age: 61 Year
  Sex: Female

DRUGS (4)
  1. WELLBUTRIN SR [Suspect]
     Indication: EX-TOBACCO USER
     Dosage: 300MG per day
     Route: 065
  2. LOSEC [Concomitant]
     Dosage: 40MG per day
  3. DIOVAN [Concomitant]
     Dosage: 160MG per day
  4. BACLOFEN [Concomitant]
     Dosage: 30MG per day

REACTIONS (5)
  - Disability [Unknown]
  - Gastric operation [Unknown]
  - Frustration [Unknown]
  - Ankle operation [Unknown]
  - Muscle spasms [Unknown]
